FAERS Safety Report 4755392-0 (Version None)
Quarter: 2005Q3

REPORT INFORMATION
  Report Type: 
  Country: None (occurrence: None)
  Receive Date: 20050826
  Receipt Date: 20050329
  Transmission Date: 20060218
  Serious: Yes (Hospitalization, Other)
  Sender: FDA-Public Use
  Company Number: USA-2003-0004375

PATIENT
  Age: 44 Year
  Sex: Female
  Weight: 49.9 kg

DRUGS (15)
  1. OXYCONTIN [Suspect]
     Indication: PAIN
     Dosage: 10 MG, BID, ORAL
     Route: 048
     Dates: start: 19970521
  2. OXYCODONE HCL [Suspect]
     Dosage: 5 MG
     Dates: start: 19980209
  3. PAXIL [Concomitant]
  4. VICODIN ES [Concomitant]
  5. DILANTIN [Concomitant]
  6. LORCET-HD [Concomitant]
  7. MAXALT [Concomitant]
  8. PERCOCET [Concomitant]
  9. PREVACID [Concomitant]
  10. PREMARIN [Concomitant]
  11. VALIUM [Concomitant]
  12. SOMA [Concomitant]
  13. RELAFEN [Concomitant]
  14. DILAUDID [Concomitant]
  15. DURAGESIC-100 [Concomitant]

REACTIONS (22)
  - ARTHRALGIA [None]
  - BLISTER [None]
  - DIARRHOEA [None]
  - DRUG ABUSER [None]
  - DRUG DEPENDENCE [None]
  - DRUG WITHDRAWAL SYNDROME [None]
  - FACE OEDEMA [None]
  - FORMICATION [None]
  - HEADACHE [None]
  - HOT FLUSH [None]
  - IRRITABILITY [None]
  - MIGRAINE [None]
  - NAUSEA [None]
  - PAIN [None]
  - RESTLESSNESS [None]
  - SKIN LESION [None]
  - SOMNOLENCE [None]
  - STOMACH DISCOMFORT [None]
  - SUICIDAL IDEATION [None]
  - THERMAL BURN [None]
  - VISION BLURRED [None]
  - VOMITING [None]
